FAERS Safety Report 12795721 (Version 3)
Quarter: 2016Q4

REPORT INFORMATION
  Report Type: Report from Study
  Country: KR (occurrence: KR)
  Receive Date: 20160929
  Receipt Date: 20161108
  Transmission Date: 20170207
  Serious: Yes (Hospitalization)
  Sender: FDA-Public Use
  Company Number: KR-ROCHE-1832604

PATIENT
  Age: 49 Year
  Sex: Male
  Weight: 58 kg

DRUGS (92)
  1. XYZAL [Concomitant]
     Active Substance: LEVOCETIRIZINE DIHYDROCHLORIDE
     Indication: URTICARIA
     Route: 065
     Dates: start: 20160622, end: 20160710
  2. BEVACIZUMAB [Suspect]
     Active Substance: BEVACIZUMAB
     Dosage: MAINTENANCE PHASE FREQUENCY AND DOSE (PER PROTOCOL)?MOST RECENT DOSE PRIOR TO AE ONSET: 31/AUG/2016,
     Route: 042
     Dates: start: 20160525, end: 20160831
  3. ALMAGENT [Concomitant]
     Indication: PROPHYLAXIS
     Route: 065
     Dates: start: 20160322, end: 20160323
  4. ALOXI [Concomitant]
     Active Substance: PALONOSETRON HYDROCHLORIDE
     Route: 065
     Dates: start: 20160224, end: 20160224
  5. DEXAMETHASONE. [Concomitant]
     Active Substance: DEXAMETHASONE
     Route: 065
     Dates: start: 20160127, end: 20160127
  6. HEPARIN [Concomitant]
     Active Substance: HEPARIN SODIUM
     Route: 065
     Dates: start: 20160213, end: 20160213
  7. HEPARIN [Concomitant]
     Active Substance: HEPARIN SODIUM
     Route: 065
     Dates: start: 20160527, end: 20160527
  8. UNASYN (AMPICILLIN SODIUM/SULBACTAM SODIUM) [Concomitant]
     Indication: TOOTHACHE
     Route: 065
     Dates: start: 20161018, end: 20161020
  9. LEUCOVORIN. [Suspect]
     Active Substance: LEUCOVORIN
     Dosage: INDUCTION PHASE DOSAGE PER INVESTIGATOR
     Route: 042
     Dates: start: 20160115, end: 20160427
  10. 5-FLUOROURACIL [Suspect]
     Active Substance: FLUOROURACIL
     Indication: COLORECTAL CANCER METASTATIC
     Dosage: MAINTENANCE PHASE: 1,600 - 2,400 MG/M2, DAY 1 OF EVERY 2-WEEK CYCLE (PER PROTOCOL)?MOST RECENT DOSE
     Route: 042
     Dates: start: 20160525, end: 20160831
  11. 5-FLUOROURACIL [Suspect]
     Active Substance: FLUOROURACIL
     Dosage: INDUCTION PHASE DOSAGE PER INVESTIGATOR
     Route: 042
     Dates: start: 20160115, end: 20160427
  12. ALOXI [Concomitant]
     Active Substance: PALONOSETRON HYDROCHLORIDE
     Indication: PREMEDICATION
     Route: 065
     Dates: start: 20160211, end: 20160211
  13. ALOXI [Concomitant]
     Active Substance: PALONOSETRON HYDROCHLORIDE
     Route: 065
     Dates: start: 20160127, end: 20160127
  14. AUGMENTIN [Concomitant]
     Active Substance: AMOXICILLIN\CLAVULANATE POTASSIUM
     Indication: TOOTHACHE
     Route: 065
     Dates: start: 20160322, end: 20160323
  15. DEXAMETHASONE. [Concomitant]
     Active Substance: DEXAMETHASONE
     Route: 065
     Dates: start: 20160427, end: 20160427
  16. DEXAMETHASONE. [Concomitant]
     Active Substance: DEXAMETHASONE
     Route: 065
     Dates: start: 20160309, end: 20160309
  17. HEPARIN [Concomitant]
     Active Substance: HEPARIN SODIUM
     Route: 065
     Dates: start: 20160624, end: 20160624
  18. HEPARIN [Concomitant]
     Active Substance: HEPARIN SODIUM
     Route: 065
     Dates: start: 20160805, end: 20160805
  19. MYPOL (SOUTH KOREA) [Concomitant]
     Route: 065
     Dates: start: 20160225, end: 20160323
  20. ULTRACET SEMI [Concomitant]
     Indication: TOOTHACHE
     Route: 065
     Dates: start: 20160211, end: 20160224
  21. BEVACIZUMAB [Suspect]
     Active Substance: BEVACIZUMAB
     Indication: COLORECTAL CANCER METASTATIC
     Dosage: INDUCTION PHASE
     Route: 042
     Dates: start: 20160115, end: 20160427
  22. ARESTAL [Concomitant]
     Active Substance: LOPERAMIDE OXIDE
     Indication: DIARRHOEA
     Route: 065
     Dates: start: 20160622, end: 20160623
  23. DEXAMETHASONE. [Concomitant]
     Active Substance: DEXAMETHASONE
     Route: 065
     Dates: start: 20160412, end: 20160412
  24. DEXAMETHASONE. [Concomitant]
     Active Substance: DEXAMETHASONE
     Route: 065
     Dates: start: 20160428, end: 20160430
  25. DUPHALAC EASY [Concomitant]
     Route: 065
     Dates: start: 20160127, end: 20160618
  26. GASTER (SOUTH KOREA) [Concomitant]
     Route: 065
     Dates: start: 20160212, end: 20160214
  27. GASTER (SOUTH KOREA) [Concomitant]
     Route: 065
     Dates: start: 20160225, end: 20160227
  28. HEPARIN [Concomitant]
     Active Substance: HEPARIN SODIUM
     Route: 065
     Dates: start: 20160429, end: 20160429
  29. HEPARIN [Concomitant]
     Active Substance: HEPARIN SODIUM
     Route: 065
     Dates: start: 20160708, end: 20160708
  30. MYPOL (SOUTH KOREA) [Concomitant]
     Indication: TOOTHACHE
     Route: 065
     Dates: start: 20160518
  31. NAXEN-F [Concomitant]
     Indication: TOOTHACHE
     Route: 065
     Dates: start: 20160401
  32. POXEN [Concomitant]
     Route: 065
     Dates: start: 20160324, end: 20160331
  33. ULTRACET SEMI [Concomitant]
     Route: 065
     Dates: start: 20160115, end: 20160126
  34. AIRTAL [Concomitant]
     Active Substance: ACECLOFENAC
     Indication: TOOTHACHE
     Route: 065
     Dates: start: 20161018, end: 20161020
  35. MEDILAC DS [Concomitant]
     Dosage: 1 CAPSULE
     Route: 065
     Dates: start: 20161018, end: 20161020
  36. ATEZOLIZUMAB [Suspect]
     Active Substance: ATEZOLIZUMAB
     Indication: COLORECTAL CANCER METASTATIC
     Dosage: MOST RECENT DOSE PRIOR TO AE ONSET: 31/AUG/2016 AT 1300 HRS (8TH CYCLE)
     Route: 042
     Dates: start: 20160525, end: 20160831
  37. LEUCOVORIN. [Suspect]
     Active Substance: LEUCOVORIN
     Indication: COLORECTAL CANCER METASTATIC
     Dosage: MAINTENANCE PHASE ?MOST RECENT DOSE PRIOR TO EVEN ONSET: 31/AUG/2016 AT 1400-1600 HRS 600 MG (8TH CY
     Route: 042
     Dates: start: 20160525, end: 20160831
  38. OXALIPLATIN. [Suspect]
     Active Substance: OXALIPLATIN
     Indication: COLORECTAL CANCER METASTATIC
     Dosage: INDUCTION PHASE DOSAGE PER INVESTIGATOR
     Route: 042
     Dates: start: 20160115, end: 20160427
  39. ALMAGENT [Concomitant]
     Route: 065
     Dates: start: 20160324, end: 20160331
  40. ALOXI [Concomitant]
     Active Substance: PALONOSETRON HYDROCHLORIDE
     Route: 065
     Dates: start: 20160115, end: 20160115
  41. DEXAMETHASONE. [Concomitant]
     Active Substance: DEXAMETHASONE
     Route: 065
     Dates: start: 20160212, end: 20160214
  42. DEXAMETHASONE. [Concomitant]
     Active Substance: DEXAMETHASONE
     Route: 065
     Dates: start: 20160413, end: 20160415
  43. DEXAMETHASONE. [Concomitant]
     Active Substance: DEXAMETHASONE
     Route: 065
     Dates: start: 20160128, end: 20160130
  44. DEXAMETHASONE. [Concomitant]
     Active Substance: DEXAMETHASONE
     Route: 065
     Dates: start: 20160330, end: 20160330
  45. GASTER (SOUTH KOREA) [Concomitant]
     Route: 065
     Dates: start: 20160331, end: 20160402
  46. MYPOL (SOUTH KOREA) [Concomitant]
     Route: 065
     Dates: start: 20160324, end: 20160331
  47. PYRIDOXINE [Concomitant]
     Active Substance: PYRIDOXINE
     Indication: LATENT TUBERCULOSIS
     Route: 065
     Dates: start: 20160520
  48. ULTRACET SEMI [Concomitant]
     Route: 065
     Dates: start: 20160127, end: 20160210
  49. STILNOX [Concomitant]
     Active Substance: ZOLPIDEM TARTRATE
     Indication: INSOMNIA
     Route: 065
     Dates: start: 20160323, end: 20160512
  50. ALOXI [Concomitant]
     Active Substance: PALONOSETRON HYDROCHLORIDE
     Route: 065
     Dates: start: 20160427, end: 20160427
  51. ALOXI [Concomitant]
     Active Substance: PALONOSETRON HYDROCHLORIDE
     Route: 065
     Dates: start: 20160309, end: 20160309
  52. DEXAMETHASONE. [Concomitant]
     Active Substance: DEXAMETHASONE
     Indication: PREMEDICATION
     Route: 065
     Dates: start: 20160310, end: 20160312
  53. DEXAMETHASONE. [Concomitant]
     Active Substance: DEXAMETHASONE
     Route: 065
     Dates: start: 20160115, end: 20160115
  54. DEXAMETHASONE. [Concomitant]
     Active Substance: DEXAMETHASONE
     Route: 065
     Dates: start: 20160331, end: 20160402
  55. MAGNESIUM OXIDE. [Concomitant]
     Active Substance: MAGNESIUM OXIDE
     Route: 065
     Dates: start: 20160127, end: 20160618
  56. PHAZYME-95 [Concomitant]
     Indication: PROPHYLAXIS
     Route: 065
     Dates: start: 20160525, end: 20160805
  57. RINO EBASTEL [Concomitant]
     Indication: RHINORRHOEA
     Route: 065
     Dates: start: 20160310, end: 20160515
  58. RINO EBASTEL [Concomitant]
     Route: 065
     Dates: start: 20160211, end: 20160218
  59. ALLEGRA [Concomitant]
     Active Substance: FEXOFENADINE HYDROCHLORIDE
     Route: 065
     Dates: start: 20160803
  60. ALOXI [Concomitant]
     Active Substance: PALONOSETRON HYDROCHLORIDE
     Route: 065
     Dates: start: 20160412, end: 20160412
  61. DEXAMETHASONE. [Concomitant]
     Active Substance: DEXAMETHASONE
     Route: 065
     Dates: start: 20160116, end: 20160118
  62. DEXAMETHASONE. [Concomitant]
     Active Substance: DEXAMETHASONE
     Route: 065
     Dates: start: 20160225, end: 20160227
  63. GASTER (SOUTH KOREA) [Concomitant]
     Route: 065
     Dates: start: 20160428, end: 20160430
  64. GASTER (SOUTH KOREA) [Concomitant]
     Route: 065
     Dates: start: 20160128, end: 20160130
  65. HEPARIN [Concomitant]
     Active Substance: HEPARIN SODIUM
     Route: 065
     Dates: start: 20160401, end: 20160401
  66. MAGNESIUM OXIDE. [Concomitant]
     Active Substance: MAGNESIUM OXIDE
     Route: 065
     Dates: start: 20160624
  67. XYZAL [Concomitant]
     Active Substance: LEVOCETIRIZINE DIHYDROCHLORIDE
     Route: 065
     Dates: start: 20160803
  68. YUHANZID [Concomitant]
     Active Substance: ISONIAZID
     Indication: LATENT TUBERCULOSIS
     Route: 065
     Dates: start: 20160520
  69. ESOMEZOL [Concomitant]
     Route: 065
     Dates: start: 20161018, end: 20161020
  70. ALLEGRA [Concomitant]
     Active Substance: FEXOFENADINE HYDROCHLORIDE
     Indication: URTICARIA
     Route: 065
     Dates: start: 20160622, end: 20160710
  71. AUGMENTIN [Concomitant]
     Active Substance: AMOXICILLIN\CLAVULANATE POTASSIUM
     Route: 065
     Dates: start: 20160324, end: 20160331
  72. DUPHALAC EASY [Concomitant]
     Route: 065
     Dates: start: 20160624
  73. GASTER (SOUTH KOREA) [Concomitant]
     Indication: PREMEDICATION
     Route: 065
     Dates: start: 20160310, end: 20160312
  74. HEPARIN [Concomitant]
     Active Substance: HEPARIN SODIUM
     Route: 065
     Dates: start: 20160117, end: 20160117
  75. HEPARIN [Concomitant]
     Active Substance: HEPARIN SODIUM
     Route: 065
     Dates: start: 20160226, end: 20160226
  76. MACPERAN [Concomitant]
     Active Substance: METOCLOPRAMIDE HYDROCHLORIDE
     Indication: NAUSEA
     Route: 065
     Dates: start: 20160312, end: 20160317
  77. MYPOL (SOUTH KOREA) [Concomitant]
     Route: 065
     Dates: start: 20160211, end: 20160224
  78. POXEN [Concomitant]
     Indication: TOOTHACHE
     Route: 065
     Dates: start: 20160322, end: 20160323
  79. SODIUM BICARBONATE. [Concomitant]
     Active Substance: SODIUM BICARBONATE
     Indication: STOMATITIS
     Route: 065
     Dates: start: 20160428, end: 20160515
  80. SODIUM BICARBONATE. [Concomitant]
     Active Substance: SODIUM BICARBONATE
     Indication: PROPHYLAXIS
     Route: 065
     Dates: start: 20160516, end: 20160519
  81. NEXIUM [Concomitant]
     Active Substance: ESOMEPRAZOLE MAGNESIUM
     Indication: PROPHYLAXIS
     Route: 065
     Dates: start: 20160923, end: 20160926
  82. ALOXI [Concomitant]
     Active Substance: PALONOSETRON HYDROCHLORIDE
     Route: 065
     Dates: start: 20160330, end: 20160330
  83. DESOWEN [Concomitant]
     Active Substance: DESONIDE
     Indication: PRURITUS
     Route: 065
     Dates: start: 20160622, end: 20160624
  84. DEXAMETHASONE. [Concomitant]
     Active Substance: DEXAMETHASONE
     Route: 065
     Dates: start: 20160211, end: 20160211
  85. DEXAMETHASONE. [Concomitant]
     Active Substance: DEXAMETHASONE
     Route: 065
     Dates: start: 20160224, end: 20160224
  86. GANAKHAN [Concomitant]
     Indication: DYSPEPSIA
     Route: 065
     Dates: start: 20160315, end: 20160318
  87. GASTER (SOUTH KOREA) [Concomitant]
     Route: 065
     Dates: start: 20160413, end: 20160415
  88. GASTER (SOUTH KOREA) [Concomitant]
     Route: 065
     Dates: start: 20160116, end: 20160118
  89. HEPARIN [Concomitant]
     Active Substance: HEPARIN SODIUM
     Dosage: CHEMOPORT FLUSHING
     Route: 065
     Dates: start: 20160311, end: 20160311
  90. HEPARIN [Concomitant]
     Active Substance: HEPARIN SODIUM
     Route: 065
     Dates: start: 20160414, end: 20160414
  91. HEPARIN [Concomitant]
     Active Substance: HEPARIN SODIUM
     Route: 065
     Dates: start: 20160722, end: 20160722
  92. HEPARIN [Concomitant]
     Active Substance: HEPARIN SODIUM
     Route: 065
     Dates: start: 20160129, end: 20160129

REACTIONS (1)
  - Hepatotoxicity [Recovered/Resolved]

NARRATIVE: CASE EVENT DATE: 20160923
